FAERS Safety Report 6432593-7 (Version None)
Quarter: 2009Q4

REPORT INFORMATION
  Report Type: 
  Country: None (occurrence: None)
  Receive Date: 20091109
  Receipt Date: 20091028
  Transmission Date: 20100525
  Serious: Yes (Other)
  Sender: FDA-Public Use
  Company Number: US-CELGENEUS-163-20785-09101548

PATIENT
  Sex: Female

DRUGS (5)
  1. THALOMID [Suspect]
     Route: 048
     Dates: start: 20080301
  2. THALOMID [Suspect]
     Dosage: 100-150MG
     Route: 048
     Dates: start: 20070501
  3. THALOMID [Suspect]
     Dosage: 500MG-300MG
     Route: 048
     Dates: start: 20070801
  4. CELEBREX [Concomitant]
     Route: 065
     Dates: start: 20070501
  5. ASPIRIN [Concomitant]
     Dosage: ONE LOW DOSE TABLET DAILY
     Route: 065
     Dates: start: 20070801

REACTIONS (6)
  - BLINDNESS TRANSIENT [None]
  - DISEASE PROGRESSION [None]
  - DRUG EXPOSURE DURING PREGNANCY [None]
  - FATIGUE [None]
  - PREGNANCY [None]
  - TREATMENT NONCOMPLIANCE [None]
